FAERS Safety Report 4859734-7 (Version None)
Quarter: 2005Q4

REPORT INFORMATION
  Report Type: 
  Country: None (occurrence: None)
  Receive Date: 20051219
  Receipt Date: 20051205
  Transmission Date: 20060501
  Serious: Yes (Other)
  Sender: FDA-Public Use
  Company Number: NSADSS2003006127

PATIENT
  Sex: Female
  Weight: 93.2 kg

DRUGS (8)
  1. REMICADE [Suspect]
     Route: 041
  2. REMICADE [Suspect]
     Route: 041
  3. REMICADE [Suspect]
     Route: 041
  4. REMICADE [Suspect]
     Route: 041
  5. REMICADE [Suspect]
     Route: 041
  6. REMICADE [Suspect]
     Indication: UVEITIS
     Route: 041
  7. AZATHIOPRINE [Concomitant]
     Route: 048
     Dates: start: 20020401
  8. AZATHIOPRINE [Concomitant]
     Route: 048
     Dates: start: 20020401

REACTIONS (1)
  - VITREOUS HAEMORRHAGE [None]
